FAERS Safety Report 8505957 (Version 3)
Quarter: 2015Q1

REPORT INFORMATION
  Report Type: Report from Study
  Country: US (occurrence: US)
  Receive Date: 20120412
  Receipt Date: 20150327
  Transmission Date: 20150721
  Serious: Yes (Death)
  Sender: FDA-Public Use
  Company Number: US-ROCHE-1056361

PATIENT
  Age: 64 Year
  Sex: Male

DRUGS (7)
  1. AKTEN [Concomitant]
     Active Substance: LIDOCAINE HYDROCHLORIDE
  2. LUCENTIS [Suspect]
     Active Substance: RANIBIZUMAB
     Indication: RETINAL VEIN OCCLUSION
  3. BESIVANCE [Concomitant]
     Active Substance: BESIFLOXACIN
  4. BETADINE [Concomitant]
     Active Substance: POVIDONE-IODINE
     Route: 065
  5. LUCENTIS [Suspect]
     Active Substance: RANIBIZUMAB
     Indication: MACULAR OEDEMA
     Dosage: RECEIVED ONCE
     Route: 050
     Dates: start: 20120127
  6. AVASTIN [Suspect]
     Active Substance: BEVACIZUMAB
     Indication: MACULAR OEDEMA
     Dosage: RECEIVED ONCE
     Route: 065
     Dates: start: 20120301
  7. TETRACAINE [Concomitant]
     Active Substance: TETRACAINE\TETRACAINE HYDROCHLORIDE

REACTIONS (1)
  - Death [Fatal]

NARRATIVE: CASE EVENT DATE: 20120317
